FAERS Safety Report 19134718 (Version 1)
Quarter: 2021Q2

REPORT INFORMATION
  Report Type: Spontaneous
  Country: US (occurrence: US)
  Receive Date: 20210414
  Receipt Date: 20210414
  Transmission Date: 20210717
  Serious: No
  Sender: FDA-Public Use
  Company Number: US-MISSION PHARMACAL COMPANY-2109317

PATIENT
  Age: 48 Year
  Sex: Female

DRUGS (1)
  1. THIOLA EC [Suspect]
     Active Substance: TIOPRONIN
     Indication: CYSTINURIA
     Route: 048
     Dates: start: 20210313

REACTIONS (4)
  - Nausea [Unknown]
  - Vomiting [Unknown]
  - Rash [Recovered/Resolved]
  - Pyrexia [Unknown]
